FAERS Safety Report 21960388 (Version 2)
Quarter: 2023Q1

REPORT INFORMATION
  Report Type: Spontaneous
  Country: UA (occurrence: UA)
  Receive Date: 20230207
  Receipt Date: 20230220
  Transmission Date: 20230417
  Serious: Yes (Hospitalization, Other)
  Sender: FDA-Public Use
  Company Number: UA-MACLEODS PHARMACEUTICALS US LTD-MAC2023039542

PATIENT

DRUGS (3)
  1. ZOLMIPTRIPTAN [Suspect]
     Active Substance: ZOLMITRIPTAN
     Indication: Migraine without aura
     Dosage: 5 MILLIGRAM
     Route: 048
  2. METOCLOPRAMIDE [Concomitant]
     Active Substance: METOCLOPRAMIDE
     Indication: Migraine without aura
     Dosage: 2 MILLILITER
     Route: 030
  3. CANDESARTAN [Concomitant]
     Active Substance: CANDESARTAN
     Indication: Migraine prophylaxis
     Dosage: 4 MILLIGRAM, QD, WITH THE WEEKLY
     Route: 065

REACTIONS (2)
  - Subdural haematoma [Recovered/Resolved]
  - Haemorrhagic stroke [Recovered/Resolved]
